FAERS Safety Report 17726599 (Version 11)
Quarter: 2021Q2

REPORT INFORMATION
  Report Type: Other
  Country: US (occurrence: US)
  Receive Date: 20200430
  Receipt Date: 20210504
  Transmission Date: 20210716
  Serious: Yes (Hospitalization, Other)
  Sender: FDA-Public Use
  Company Number: US-ROCHE-2586041

PATIENT
  Age: 56 Year
  Sex: Female
  Weight: 65.83 kg

DRUGS (17)
  1. OCREVUS [Suspect]
     Active Substance: OCRELIZUMAB
     Route: 042
     Dates: start: 201906
  2. BABY ASPIRIN [Concomitant]
     Active Substance: ASPIRIN
     Route: 048
  3. VITAMIN D3 [Concomitant]
     Active Substance: CHOLECALCIFEROL
  4. OCREVUS [Suspect]
     Active Substance: OCRELIZUMAB
     Indication: RELAPSING MULTIPLE SCLEROSIS
     Dosage: SECOND HALF DOSE
     Route: 042
     Dates: start: 20190815
  5. BACLOFEN. [Concomitant]
     Active Substance: BACLOFEN
     Indication: MUSCLE SPASMS
     Dosage: CONTINUOUS BACLOFEN PUMP
     Route: 065
     Dates: start: 2010
  6. VITAMIN C + ZINK [Concomitant]
     Route: 048
  7. METOPROLOL. [Concomitant]
     Active Substance: METOPROLOL
     Indication: HEART RATE INCREASED
     Dosage: 2 25 MG TABLETS TWICE A DAY = 100 MG
     Route: 048
     Dates: start: 20200405
  8. METOPROLOL. [Concomitant]
     Active Substance: METOPROLOL
     Route: 048
  9. OCREVUS [Suspect]
     Active Substance: OCRELIZUMAB
     Indication: SECONDARY PROGRESSIVE MULTIPLE SCLEROSIS
     Dosage: SUBSEQUENT INFUSIONS WERE RECEIVED ON 15/AUG/2019 AND 600 MG ON 26/FEB/2020.
     Route: 042
     Dates: start: 20190731
  10. ZINC. [Concomitant]
     Active Substance: ZINC
  11. CITALOPRAM [Concomitant]
     Active Substance: CITALOPRAM HYDROBROMIDE
     Indication: DEPRESSION
     Route: 048
     Dates: start: 2010
  12. METHENAMINE [Concomitant]
     Active Substance: METHENAMINE
     Route: 048
  13. OXYGEN. [Concomitant]
     Active Substance: OXYGEN
     Indication: DYSPNOEA
     Dosage: 5 LPM CONTINOUS
     Dates: start: 20200405
  14. OCREVUS [Suspect]
     Active Substance: OCRELIZUMAB
     Indication: PROGRESSIVE MULTIPLE SCLEROSIS
     Route: 042
     Dates: start: 20190226
  15. METHENAMINE [Concomitant]
     Active Substance: METHENAMINE
     Indication: CYSTITIS
     Route: 048
     Dates: start: 2010
  16. BACLOFEN. [Concomitant]
     Active Substance: BACLOFEN
     Dosage: CONTINUOUS BACLOFEN PUMP
     Route: 065
     Dates: start: 2011
  17. VITAMIN B12 [Concomitant]
     Active Substance: CYANOCOBALAMIN
     Route: 048

REACTIONS (16)
  - Cardiomegaly [Unknown]
  - Osteitis [Unknown]
  - Ageusia [Unknown]
  - Wound [Not Recovered/Not Resolved]
  - Heart rate increased [Recovered/Resolved]
  - Rash [Not Recovered/Not Resolved]
  - Cardiac failure congestive [Unknown]
  - Osteomyelitis [Not Recovered/Not Resolved]
  - Resuscitation [Not Recovered/Not Resolved]
  - Pyrexia [Not Recovered/Not Resolved]
  - Decubitus ulcer [Not Recovered/Not Resolved]
  - Syncope [Unknown]
  - Pneumonia [Recovered/Resolved]
  - COVID-19 [Recovered/Resolved]
  - Illness [Not Recovered/Not Resolved]
  - Muscular weakness [Not Recovered/Not Resolved]

NARRATIVE: CASE EVENT DATE: 202004
